FAERS Safety Report 5714242-6 (Version None)
Quarter: 2008Q2

REPORT INFORMATION
  Report Type: 
  Country: None (occurrence: None)
  Receive Date: 20080423
  Receipt Date: 20080220
  Transmission Date: 20081010
  Serious: No
  Sender: FDA-Public Use
  Company Number: US-KINGPHARMUSA00001-K200800229

PATIENT

DRUGS (5)
  1. SKELAXIN [Suspect]
     Indication: MUSCULOSKELETAL DISCOMFORT
     Dosage: 800 MG, TID
     Route: 048
     Dates: start: 20080211
  2. MOBIC [Concomitant]
     Indication: CARDIAC DISORDER
     Dosage: UNK, QD
  3. ASPIRIN [Concomitant]
     Indication: CARDIAC DISORDER
     Dosage: UNK, QD
  4. PLAVIX [Concomitant]
     Indication: CARDIAC DISORDER
     Dosage: UNK, QD
  5. TOPROL-XL [Concomitant]
     Indication: CARDIAC DISORDER
     Dosage: UNK, QD

REACTIONS (1)
  - DRUG INEFFECTIVE [None]
